FAERS Safety Report 11897951 (Version 1)
Quarter: 2016Q1

REPORT INFORMATION
  Report Type: Spontaneous
  Country: US (occurrence: None)
  Receive Date: 20160107
  Receipt Date: 20160107
  Transmission Date: 20160526
  Serious: Yes (Hospitalization)
  Sender: FDA-Public Use
  Company Number: None

PATIENT
  Age: 68 Year
  Sex: Male
  Weight: 107.3 kg

DRUGS (2)
  1. CLOPIDOGREL [Suspect]
     Active Substance: CLOPIDOGREL BISULFATE
     Indication: CORONARY ARTERIAL STENT INSERTION
     Route: 048
     Dates: start: 20070503, end: 20151221
  2. ASPIRIN. [Suspect]
     Active Substance: ASPIRIN
     Indication: CORONARY ARTERIAL STENT INSERTION
     Route: 048
     Dates: start: 20080616

REACTIONS (6)
  - Duodenal ulcer haemorrhage [None]
  - Refusal of treatment by patient [None]
  - Gastric ulcer [None]
  - Anaemia [None]
  - Helicobacter infection [None]
  - Large intestine polyp [None]

NARRATIVE: CASE EVENT DATE: 20151221
